FAERS Safety Report 9830269 (Version 5)
Quarter: 2015Q1

REPORT INFORMATION
  Report Type: Report from Study
  Country: IT (occurrence: IT)
  Receive Date: 20140120
  Receipt Date: 20150327
  Transmission Date: 20150721
  Serious: Yes (Hospitalization)
  Sender: FDA-Public Use
  Company Number: IT-ROCHE-1331939

PATIENT
  Age: 66 Year
  Sex: Female
  Weight: 55 kg

DRUGS (17)
  1. DELTACORTENE [Concomitant]
     Active Substance: PREDNISONE
     Route: 065
     Dates: start: 20131216, end: 20131221
  2. PARACETAMOL [Concomitant]
     Active Substance: ACETAMINOPHEN
     Indication: PREMEDICATION
     Route: 065
     Dates: start: 20131210, end: 20131210
  3. PANTOPRAZOLE [Concomitant]
     Active Substance: PANTOPRAZOLE SODIUM
     Indication: PROPHYLAXIS
  4. LASIX [Concomitant]
     Active Substance: FUROSEMIDE
     Indication: RENAL HYPOPLASIA
  5. ITRACONAZOL [Concomitant]
     Active Substance: ITRACONAZOLE
     Indication: PROPHYLAXIS
     Route: 065
     Dates: start: 20131215, end: 20131224
  6. VINCRISTINE [Suspect]
     Active Substance: VINCRISTINE
     Indication: DIFFUSE LARGE B-CELL LYMPHOMA
     Dosage: DOSE OF LAST VINCRISTINE TAKEN 2MG.?LAST DOSE PRIOR TO SAE WAS ON 11/DEC/2013
     Route: 040
     Dates: start: 20131030
  7. OBINUTUZUMAB [Suspect]
     Active Substance: OBINUTUZUMAB
     Indication: DIFFUSE LARGE B-CELL LYMPHOMA
     Dosage: LAST DOSE PRIOR TO SAE WAS ON 10/DEC/2013.?VOLUME OF LAST GA101 TAKEN WAS 250ML AND DOSE CONCENTRATI
     Route: 042
     Dates: start: 20131029
  8. DOXORUBICIN [Suspect]
     Active Substance: DOXORUBICIN
     Indication: DIFFUSE LARGE B-CELL LYMPHOMA
     Dosage: DOSE OF LAST DOXORUBICIN TAKEN WAS 77MG.?LAST DOSE PRIOR TO SAE WAS ON 11/DEC/2013
     Route: 042
     Dates: start: 20131030
  9. BACTRIM [Concomitant]
     Active Substance: SULFAMETHOXAZOLE\TRIMETHOPRIM
     Indication: ANTIBIOTIC THERAPY
     Route: 065
     Dates: start: 20131119
  10. LEVOFLOXACINA [Concomitant]
     Active Substance: LEVOFLOXACIN
     Indication: PROPHYLAXIS
     Route: 065
     Dates: start: 20131215, end: 20131224
  11. CEFIXORAL [Concomitant]
     Active Substance: CEFIXIME
     Indication: COUGH
     Route: 065
     Dates: start: 20131231, end: 20140108
  12. CYCLOPHOSPHAMIDE. [Suspect]
     Active Substance: CYCLOPHOSPHAMIDE
     Indication: DIFFUSE LARGE B-CELL LYMPHOMA
     Dosage: DOSE OF LAST CYCLOPHOSPHAMIDE TAKEN 1155MG.?LAST DOSE PRIOR TO SAE WAS ON 11/DEC/2013
     Route: 042
     Dates: start: 20131030
  13. TRIMETON (ITALY) [Concomitant]
     Indication: PREMEDICATION
     Route: 065
     Dates: start: 20131210, end: 20131210
  14. URBASON [Concomitant]
     Active Substance: METHYLPREDNISOLONE
     Indication: PREMEDICATION
     Route: 065
     Dates: start: 20131210, end: 20131210
  15. DIFLUCAN [Concomitant]
     Active Substance: FLUCONAZOLE
     Indication: CANDIDA INFECTION
     Route: 065
     Dates: start: 20131231
  16. ZOVIRAX [Concomitant]
     Active Substance: ACYCLOVIR
     Indication: ORAL HERPES
     Route: 065
     Dates: start: 20131231
  17. PREDNISONE. [Suspect]
     Active Substance: PREDNISONE
     Indication: DIFFUSE LARGE B-CELL LYMPHOMA
     Dosage: DOSE OF LAST PREDNISONE WAS 12.5MG.?LAST DOSE PRIOR TO SAE WAS ON 21/DEC/2013
     Route: 065
     Dates: start: 20131030

REACTIONS (3)
  - Pneumonia [Recovered/Resolved]
  - Pulmonary embolism [Recovered/Resolved]
  - Dyspnoea [Not Recovered/Not Resolved]

NARRATIVE: CASE EVENT DATE: 20140108
